FAERS Safety Report 19519039 (Version 1)
Quarter: 2021Q3

REPORT INFORMATION
  Report Type: Spontaneous
  Country: US (occurrence: US)
  Receive Date: 20210710
  Receipt Date: 20210710
  Transmission Date: 20211014
  Serious: No
  Sender: FDA-Public Use
  Company Number: None

PATIENT
  Age: 16 Year
  Sex: Female
  Weight: 68.04 kg

DRUGS (1)
  1. NEXPLANON [Suspect]
     Active Substance: ETONOGESTREL
     Dates: start: 20210315, end: 20210708

REACTIONS (7)
  - Intrusive thoughts [None]
  - Aggression [None]
  - Partner stress [None]
  - Emotional disorder [None]
  - Anger [None]
  - Impaired quality of life [None]
  - Memory impairment [None]

NARRATIVE: CASE EVENT DATE: 20210322
